FAERS Safety Report 23181416 (Version 1)
Quarter: 2023Q4

REPORT INFORMATION
  Report Type: Report from Study
  Country: US (occurrence: None)
  Receive Date: 20231114
  Receipt Date: 20231114
  Transmission Date: 20240110
  Serious: Yes (Other)
  Sender: FDA-Public Use
  Company Number: 2023A253194

PATIENT
  Age: 25674 Day
  Sex: Male

DRUGS (1)
  1. CALQUENCE [Suspect]
     Active Substance: ACALABRUTINIB
     Indication: Chronic lymphocytic leukaemia (in remission)
     Route: 048
     Dates: start: 20230118

REACTIONS (8)
  - Oesophageal spasm [Unknown]
  - Tendon rupture [Unknown]
  - Dysphagia [Unknown]
  - Muscle spasms [Unknown]
  - Tendon disorder [Unknown]
  - Muscle disorder [Unknown]
  - Dry skin [Unknown]
  - Sunburn [Unknown]

NARRATIVE: CASE EVENT DATE: 20231106
